FAERS Safety Report 8620991-2 (Version None)
Quarter: 2012Q3

REPORT INFORMATION
  Report Type: 
  Country: None (occurrence: None)
  Receive Date: 20120824
  Receipt Date: 20120813
  Transmission Date: 20120928
  Serious: Yes (Hospitalization)
  Sender: FDA-Public Use
  Company Number: IT-ELI_LILLY_AND_COMPANY-IT201208003916

PATIENT
  Sex: Male

DRUGS (3)
  1. HUMALOG [Suspect]
     Indication: DIABETES MELLITUS
     Dosage: 6 IU, QD
     Route: 058
     Dates: start: 20120101, end: 20120718
  2. LANSOPRAZOLE [Concomitant]
     Dosage: UNK
     Dates: start: 20120101, end: 20120718
  3. ASPIRIN [Concomitant]
     Dosage: UNK
     Dates: start: 20120101, end: 20120718

REACTIONS (6)
  - HYPOGLYCAEMIA [None]
  - CACHEXIA [None]
  - DEHYDRATION [None]
  - VOMITING [None]
  - HAEMOGLOBIN DECREASED [None]
  - RED BLOOD CELL COUNT DECREASED [None]
